FAERS Safety Report 14871790 (Version 1)
Quarter: 2018Q2

REPORT INFORMATION
  Report Type: Spontaneous
  Country: FR (occurrence: FR)
  Receive Date: 20180509
  Receipt Date: 20180509
  Transmission Date: 20180711
  Serious: Yes (Other)
  Sender: FDA-Public Use
  Company Number: FR-MERCK KGAA-2047498

PATIENT
  Age: 60 Year
  Sex: Female

DRUGS (1)
  1. NOVOTHYROX [Suspect]
     Active Substance: LEVOTHYROXINE SODIUM
     Indication: PRODUCT USED FOR UNKNOWN INDICATION

REACTIONS (26)
  - Crying [None]
  - Social avoidant behaviour [None]
  - Pain in extremity [Not Recovered/Not Resolved]
  - Muscle spasms [None]
  - Abdominal pain upper [Not Recovered/Not Resolved]
  - Mean cell haemoglobin concentration decreased [None]
  - Depression suicidal [None]
  - Fatigue [None]
  - Decreased interest [None]
  - Hyperhidrosis [None]
  - Alopecia [None]
  - Loss of personal independence in daily activities [None]
  - Eosinophil count increased [None]
  - Mean cell haemoglobin decreased [None]
  - Suicidal ideation [None]
  - Depression [None]
  - Dyspnoea [None]
  - Myalgia [Not Recovered/Not Resolved]
  - C-reactive protein increased [None]
  - Increased appetite [None]
  - Pain [Not Recovered/Not Resolved]
  - Asthenia [None]
  - Balance disorder [None]
  - Weight increased [None]
  - Gait disturbance [None]
  - Palpitations [None]

NARRATIVE: CASE EVENT DATE: 201704
